FAERS Safety Report 8105315-1 (Version None)
Quarter: 2012Q1

REPORT INFORMATION
  Report Type: 
  Country: None (occurrence: None)
  Receive Date: 20120201
  Receipt Date: 20120124
  Transmission Date: 20120608
  Serious: Yes (Hospitalization)
  Sender: FDA-Public Use
  Company Number: PHEH2012US001247

PATIENT
  Sex: Male
  Weight: 89.1 kg

DRUGS (13)
  1. GABAPENTIN [Concomitant]
     Indication: MULTIPLE SCLEROSIS
     Dosage: 300 MG, BID
     Dates: start: 20111202
  2. SERTRALINE HYDROCHLORIDE [Concomitant]
     Indication: DEPRESSION
     Dosage: 100 MG, QD
     Dates: start: 20110613
  3. TESTOSTERONE ENANTATE [Concomitant]
     Dosage: 1 ML, BIW
     Dates: start: 20111215
  4. VALIUM [Concomitant]
     Dosage: 1 DF, BID
     Route: 048
     Dates: start: 20101201
  5. OMEPRAZOLE [Concomitant]
     Indication: GASTROOESOPHAGEAL REFLUX DISEASE
     Dosage: 20 MG, QD
     Dates: start: 20110826
  6. SYMBICORT [Concomitant]
     Dosage: 2 DF, BID
     Dates: start: 20111214
  7. CELEBREX [Concomitant]
     Indication: OSTEOARTHRITIS
     Dosage: 200 MG, QD
     Dates: start: 20111020
  8. SUMATRIPTAN SUCCINATE [Concomitant]
     Indication: CLUSTER HEADACHE
     Dosage: 1 DF, PRN
     Dates: start: 20110826
  9. GILENYA [Suspect]
     Indication: MULTIPLE SCLEROSIS
     Dosage: 0.5 MG, QD
     Route: 048
     Dates: start: 20120106, end: 20120106
  10. MS CONTIN [Concomitant]
     Indication: PAIN
     Dosage: 60 MG, BID
     Dates: start: 20111201
  11. SPIRIVA [Concomitant]
     Dosage: 1 DF, QD
     Dates: start: 20111020
  12. CALCIUM [Concomitant]
     Dosage: 1 DF, QD
     Route: 048
  13. OXYCODONE HCL [Concomitant]
     Indication: PAIN
     Dosage: 1 DF, Q4H

REACTIONS (43)
  - CHRONIC OBSTRUCTIVE PULMONARY DISEASE [None]
  - PULMONARY CONGESTION [None]
  - MUCOSAL DRYNESS [None]
  - EJECTION FRACTION DECREASED [None]
  - MONOCYTE COUNT INCREASED [None]
  - DYSPNOEA [None]
  - DIAPHRAGMATIC DISORDER [None]
  - PYREXIA [None]
  - DYSPNOEA EXERTIONAL [None]
  - OXYGEN SATURATION ABNORMAL [None]
  - COUGH [None]
  - RESPIRATORY DISTRESS [None]
  - PNEUMONIA [None]
  - MITRAL VALVE INCOMPETENCE [None]
  - BUNDLE BRANCH BLOCK RIGHT [None]
  - WHITE BLOOD CELL COUNT INCREASED [None]
  - BLOOD CHLORIDE DECREASED [None]
  - GLOMERULAR FILTRATION RATE DECREASED [None]
  - PROTEIN TOTAL INCREASED [None]
  - TACHYPNOEA [None]
  - RED CELL DISTRIBUTION WIDTH [None]
  - CARBON DIOXIDE INCREASED [None]
  - LYMPHOCYTE COUNT DECREASED [None]
  - EMPHYSEMA [None]
  - RALES [None]
  - BLOOD SODIUM DECREASED [None]
  - NEUTROPHIL PERCENTAGE INCREASED [None]
  - DIZZINESS [None]
  - INCREASED UPPER AIRWAY SECRETION [None]
  - LEFT ATRIAL DILATATION [None]
  - VENTRICULAR EXTRASYSTOLES [None]
  - BLOOD CALCIUM DECREASED [None]
  - GLOBULINS INCREASED [None]
  - CHEST PAIN [None]
  - RHONCHI [None]
  - ALBUMIN GLOBULIN RATIO DECREASED [None]
  - BLOOD MAGNESIUM DECREASED [None]
  - BLOOD PRESSURE INCREASED [None]
  - HYPOXIA [None]
  - BREATH SOUNDS ABNORMAL [None]
  - WHEEZING [None]
  - VENTRICULAR HYPOKINESIA [None]
  - BLOOD GLUCOSE INCREASED [None]
